FAERS Safety Report 9641635 (Version 2)
Quarter: 2013Q4

REPORT INFORMATION
  Report Type: Spontaneous
  Country: JP (occurrence: JP)
  Receive Date: 20131023
  Receipt Date: 20131121
  Transmission Date: 20140711
  Serious: Yes (Death, Hospitalization, Disabling)
  Sender: FDA-Public Use
  Company Number: JP-GLAXOSMITHKLINE-B0933772A

PATIENT
  Age: 88 Year
  Sex: Female

DRUGS (7)
  1. VALTREX [Suspect]
     Indication: HERPES ZOSTER
     Dosage: 1000MG THREE TIMES PER DAY
     Route: 048
     Dates: start: 20130914, end: 20130917
  2. ARASENA-A [Suspect]
     Indication: HERPES ZOSTER
     Dosage: 300MG PER DAY
     Route: 042
     Dates: start: 20130914, end: 20130914
  3. METHYCOBAL [Concomitant]
     Indication: NEUROLOGICAL SYMPTOM
     Dosage: 500MCG THREE TIMES PER DAY
     Route: 048
     Dates: start: 20130914, end: 20130917
  4. ALLELOCK [Concomitant]
     Indication: PRURITUS
     Dosage: 5MG TWICE PER DAY
     Route: 048
     Dates: start: 20130914, end: 20130917
  5. FUROSEMIDE [Concomitant]
     Dosage: 20MG PER DAY
     Route: 048
     Dates: end: 20131008
  6. BAYASPIRIN [Concomitant]
     Dosage: 100MG PER DAY
     Route: 048
     Dates: end: 20131008
  7. SPIRONOLACTONE [Concomitant]
     Dosage: 25MG PER DAY
     Route: 048
     Dates: end: 20131008

REACTIONS (17)
  - Toxic encephalopathy [Recovering/Resolving]
  - Asthenia [Unknown]
  - Lack of spontaneous speech [Recovering/Resolving]
  - Hypophagia [Recovering/Resolving]
  - Somnolence [Unknown]
  - Depressed level of consciousness [Unknown]
  - Delirium [Recovering/Resolving]
  - Malaise [Unknown]
  - Pyrexia [Unknown]
  - Cough [Unknown]
  - Pneumonia aspiration [Fatal]
  - Cardiac failure [Unknown]
  - Renal failure [Unknown]
  - Hypotension [Unknown]
  - Blister [Unknown]
  - Skin ulcer [Unknown]
  - White matter lesion [Unknown]
